FAERS Safety Report 8559339-0 (Version None)
Quarter: 2012Q3

REPORT INFORMATION
  Report Type: 
  Country: None (occurrence: None)
  Receive Date: 20120802
  Receipt Date: 20120730
  Transmission Date: 20120928
  Serious: Yes (Hospitalization)
  Sender: FDA-Public Use
  Company Number: US-AMGEN-USASP2011042640

PATIENT
  Age: 52 Year
  Sex: Female
  Weight: 71.202 kg

DRUGS (1)
  1. ENBREL [Suspect]
     Indication: RHEUMATOID ARTHRITIS
     Dosage: 50 MG, QWK
     Route: 058
     Dates: start: 20090101, end: 20110801

REACTIONS (4)
  - PYELONEPHRITIS [None]
  - URINARY TRACT INFECTION [None]
  - DRUG INEFFECTIVE [None]
  - NEPHROLITHIASIS [None]
